FAERS Safety Report 11682982 (Version 3)
Quarter: 2016Q1

REPORT INFORMATION
  Report Type: Spontaneous
  Country: US (occurrence: US)
  Receive Date: 20151029
  Receipt Date: 20160210
  Transmission Date: 20160525
  Serious: Yes (Death, Other)
  Sender: FDA-Public Use
  Company Number: US-FRESENIUS KABI-FK201505457

PATIENT
  Age: 22 Year
  Sex: Male
  Weight: 69 kg

DRUGS (64)
  1. ACETAMINOPHEN. [Concomitant]
     Active Substance: ACETAMINOPHEN
     Route: 042
     Dates: start: 20141115, end: 20141123
  2. VANCOMYCIN [Concomitant]
     Active Substance: VANCOMYCIN
     Indication: DIARRHOEA
     Route: 048
     Dates: start: 20141123, end: 20141204
  3. VASOPRESSIN. [Concomitant]
     Active Substance: VASOPRESSIN
     Indication: SEPTIC SHOCK
     Route: 042
     Dates: start: 20141122, end: 20141123
  4. HYDROCORTISONE. [Concomitant]
     Active Substance: HYDROCORTISONE
     Indication: PREMEDICATION
     Route: 048
     Dates: start: 20141122, end: 20141128
  5. CAFFEINE. [Concomitant]
     Active Substance: CAFFEINE
     Indication: HEADACHE
     Dates: start: 20141115, end: 20141125
  6. DIPHENHYDRAMINE. [Concomitant]
     Active Substance: DIPHENHYDRAMINE
     Indication: NAUSEA
     Dates: start: 20141115, end: 20141220
  7. FLUCONAZOLE. [Concomitant]
     Active Substance: FLUCONAZOLE
     Indication: SEPTIC SHOCK
     Dates: start: 20141125, end: 20141127
  8. METOCLOPRAMIDE. [Concomitant]
     Active Substance: METOCLOPRAMIDE
     Indication: PROPHYLAXIS
     Dates: start: 20141112, end: 20141122
  9. PHYTONADIONE. [Concomitant]
     Active Substance: PHYTONADIONE
     Indication: COAGULOPATHY
     Dates: start: 20141124, end: 20141226
  10. DEXAMETHASONE. [Concomitant]
     Active Substance: DEXAMETHASONE
     Indication: NAUSEA
  11. ACETAMINOPHEN. [Concomitant]
     Active Substance: ACETAMINOPHEN
     Dates: start: 20141103, end: 20150116
  12. CEFEPIME [Concomitant]
     Active Substance: CEFEPIME HYDROCHLORIDE
     Indication: FEBRILE NEUTROPENIA
     Dates: start: 20141104, end: 20141121
  13. METRONIDAZOLE. [Concomitant]
     Active Substance: METRONIDAZOLE
     Indication: PROPHYLAXIS
     Route: 042
     Dates: start: 20141203, end: 20141205
  14. METRONIDAZOLE. [Concomitant]
     Active Substance: METRONIDAZOLE
     Indication: DIARRHOEA
     Dates: start: 20141118, end: 20141230
  15. CHLORHEXIDINE [Concomitant]
     Active Substance: CHLORHEXIDINE
     Indication: PROPHYLAXIS
     Dates: start: 20141122, end: 20141203
  16. SODIUM PHOSPHATE [Concomitant]
     Active Substance: SODIUM PHOSPHATE
     Indication: HYPONATRAEMIA
     Dates: start: 20141124, end: 20141216
  17. VITAMIN K [Concomitant]
     Active Substance: PHYTONADIONE
     Indication: COAGULOPATHY
     Dates: start: 20141124, end: 20141126
  18. OXYGEN. [Concomitant]
     Active Substance: OXYGEN
     Dates: start: 20141122, end: 20141125
  19. METHOTREXATE (MANUFACTURER UNKNOWN) [Suspect]
     Active Substance: METHOTREXATE
     Indication: PROPHYLAXIS
     Route: 037
     Dates: start: 20141112, end: 20141130
  20. PHENYLEPHRINE [Concomitant]
     Active Substance: PHENYLEPHRINE\PHENYLEPHRINE HYDROCHLORIDE
     Indication: SEPTIC SHOCK
     Route: 042
     Dates: start: 20141122, end: 20141123
  21. ZOFRAN [Concomitant]
     Active Substance: ONDANSETRON HYDROCHLORIDE
     Indication: NAUSEA
     Dates: start: 20141103, end: 20150102
  22. VORICONAZOLE. [Concomitant]
     Active Substance: VORICONAZOLE
     Indication: PYREXIA
     Dates: start: 20141127, end: 20141204
  23. WHITE PETROLATUM [Concomitant]
     Active Substance: PETROLATUM
     Indication: DRY EYE
     Dates: start: 20141123, end: 20150117
  24. CALCIUM ACETATE. [Concomitant]
     Active Substance: CALCIUM ACETATE
     Dates: start: 20141118, end: 20141120
  25. POTASSIUM CHLORIDE. [Concomitant]
     Active Substance: POTASSIUM CHLORIDE
     Indication: ELECTROLYTE SUBSTITUTION THERAPY
     Route: 042
     Dates: start: 20141122, end: 20150117
  26. ZOSYN [Concomitant]
     Active Substance: PIPERACILLIN SODIUM\TAZOBACTAM SODIUM
     Indication: PROPHYLAXIS
     Dates: start: 20141118, end: 20141219
  27. ALLOPURINOL. [Concomitant]
     Active Substance: ALLOPURINOL
     Indication: PROPHYLAXIS
     Dates: start: 20141104, end: 20141208
  28. FAMOTIDINE. [Concomitant]
     Active Substance: FAMOTIDINE
     Indication: ABDOMINAL PAIN
     Dates: start: 20141119, end: 20150103
  29. FENTANYL. [Concomitant]
     Active Substance: FENTANYL
     Indication: PREMEDICATION
     Dates: start: 20141122, end: 20141122
  30. TRIAMCINOLONE ACETONIDE. [Concomitant]
     Active Substance: TRIAMCINOLONE ACETONIDE
     Indication: RASH
     Dates: start: 20141116, end: 20150115
  31. MITOXANTRONE [Suspect]
     Active Substance: MITOXANTRONE HYDROCHLORIDE
     Indication: ACUTE LYMPHOCYTIC LEUKAEMIA
     Route: 042
     Dates: start: 20141110, end: 20141112
  32. VANCOMYCIN [Concomitant]
     Active Substance: VANCOMYCIN
     Dates: start: 20141122, end: 20150110
  33. DOPAMINE [Concomitant]
     Active Substance: DOPAMINE\DOPAMINE HYDROCHLORIDE
     Indication: SEPTIC SHOCK
     Route: 042
     Dates: start: 20141122, end: 20141122
  34. DILAUDID [Concomitant]
     Active Substance: HYDROMORPHONE HYDROCHLORIDE
     Indication: ABDOMINAL PAIN
     Dates: start: 20141104, end: 20141230
  35. DILAUDID [Concomitant]
     Active Substance: HYDROMORPHONE HYDROCHLORIDE
     Indication: PREMEDICATION
  36. FLORICET [Concomitant]
     Indication: HEADACHE
     Dates: start: 20141116, end: 20141219
  37. VORICONAZOLE. [Concomitant]
     Active Substance: VORICONAZOLE
     Indication: PLEURAL EFFUSION
  38. EPINEPHRINE. [Concomitant]
     Active Substance: EPINEPHRINE
     Indication: SEPTIC SHOCK
     Dates: start: 20141122, end: 20141124
  39. LIDOCAINE. [Concomitant]
     Active Substance: LIDOCAINE
     Dates: start: 20141104, end: 20141126
  40. MAGNESIUM SULFATE. [Concomitant]
     Active Substance: MAGNESIUM SULFATE
     Indication: HYPOMAGNESAEMIA
     Dates: start: 20141122, end: 20150117
  41. NALOXONE [Concomitant]
     Active Substance: NALOXONE
     Indication: ABDOMINAL PAIN
     Dates: start: 20141125, end: 20150101
  42. POTASSIUM PHOSPHATE [Concomitant]
     Active Substance: POTASSIUM PHOSPHATE
     Indication: ELECTROLYTE SUBSTITUTION THERAPY
     Route: 042
     Dates: start: 20141122, end: 20141216
  43. CETIRIZINE [Concomitant]
     Active Substance: CETIRIZINE HYDROCHLORIDE
     Dates: start: 20141111, end: 20141209
  44. DOCUSATE [Concomitant]
     Active Substance: DOCUSATE
     Indication: CONSTIPATION
     Dates: start: 20141103, end: 20141230
  45. HYDROXYZINE [Concomitant]
     Active Substance: HYDROXYZINE\HYDROXYZINE HYDROCHLORIDE
     Indication: RASH
     Dates: start: 20141119, end: 20141203
  46. POLYETHYLENE GLYCOL [Concomitant]
     Active Substance: POLYETHYLENE GLYCOLS
     Dates: start: 20141103, end: 20141230
  47. CYTARABINE. [Suspect]
     Active Substance: CYTARABINE
     Indication: ACUTE LYMPHOCYTIC LEUKAEMIA
     Route: 042
     Dates: start: 20141110, end: 20141117
  48. VANCOMYCIN [Concomitant]
     Active Substance: VANCOMYCIN
     Indication: SEPTIC SHOCK
     Route: 048
     Dates: start: 20141122, end: 20141123
  49. MEROPENEM. [Concomitant]
     Active Substance: MEROPENEM
     Indication: SEPTIC SHOCK
     Route: 042
     Dates: start: 20141122, end: 20141204
  50. ACYCLOVIR. [Concomitant]
     Active Substance: ACYCLOVIR
     Indication: PYREXIA
     Route: 048
     Dates: start: 20141126, end: 20141209
  51. ZOFRAN [Concomitant]
     Active Substance: ONDANSETRON HYDROCHLORIDE
     Indication: PROPHYLAXIS
  52. LACTATE RINGER BOLUS [Concomitant]
     Indication: SEPTIC SHOCK
     Dates: start: 20141123, end: 20141230
  53. NOREPINEPHRINE [Concomitant]
     Active Substance: NOREPINEPHRINE\NOREPINEPHRINE BITARTRATE
     Indication: SEPTIC SHOCK
     Dates: start: 20141122, end: 20141231
  54. PANTOPRAZOLE [Concomitant]
     Active Substance: PANTOPRAZOLE SODIUM
     Indication: PROPHYLAXIS
     Dates: start: 20141104, end: 20141119
  55. FUROSEMIDE. [Concomitant]
     Active Substance: FUROSEMIDE
     Dates: start: 20141130, end: 20141223
  56. HEPARIN [Concomitant]
     Active Substance: HEPARIN SODIUM
     Indication: PROPHYLAXIS
     Dates: start: 20141123, end: 20150117
  57. LORAZEPAM. [Concomitant]
     Active Substance: LORAZEPAM
     Indication: PREMEDICATION
     Dates: start: 20141212, end: 20141230
  58. OXYCODONE [Concomitant]
     Active Substance: OXYCODONE
     Indication: PREMEDICATION
     Dates: start: 20141105, end: 20150113
  59. FILGRASTIM [Concomitant]
     Active Substance: FILGRASTIM
     Dates: start: 20141125, end: 20141212
  60. CASPOFUNGIN [Concomitant]
     Active Substance: CASPOFUNGIN
     Indication: SEPTIC SHOCK
     Route: 042
     Dates: start: 20141123, end: 20141209
  61. ZOSYN [Concomitant]
     Active Substance: PIPERACILLIN SODIUM\TAZOBACTAM SODIUM
     Indication: PYREXIA
  62. PROCHLORPERAZINE. [Concomitant]
     Active Substance: PROCHLORPERAZINE
     Dates: start: 20141112, end: 20141230
  63. SENOKOT [Concomitant]
     Active Substance: SENNOSIDES
     Indication: CONSTIPATION
     Dates: start: 20141120, end: 20150103
  64. DEXAMETHASONE. [Concomitant]
     Active Substance: DEXAMETHASONE
     Indication: HEADACHE
     Dates: start: 20141110, end: 20141223

REACTIONS (1)
  - Cerebrovascular accident [Recovered/Resolved with Sequelae]

NARRATIVE: CASE EVENT DATE: 20141202
